FAERS Safety Report 7009529-3 (Version None)
Quarter: 2010Q3

REPORT INFORMATION
  Report Type: 
  Country: None (occurrence: None)
  Receive Date: 20100923
  Receipt Date: 20100915
  Transmission Date: 20110219
  Serious: Yes (Other)
  Sender: FDA-Public Use
  Company Number: PHHY2010AU61355

PATIENT
  Sex: Male

DRUGS (2)
  1. AFINITOR [Suspect]
     Indication: RENAL CELL CARCINOMA
     Dosage: 10 MG, UNK
     Dates: start: 20100217
  2. AFINITOR [Suspect]
     Dosage: 5 MG, UNK
     Dates: start: 20100301

REACTIONS (1)
  - GENERAL PHYSICAL HEALTH DETERIORATION [None]
